FAERS Safety Report 12463006 (Version 1)
Quarter: 2016Q2

REPORT INFORMATION
  Report Type: Spontaneous
  Country: US (occurrence: US)
  Receive Date: 20160614
  Receipt Date: 20160614
  Transmission Date: 20160815
  Serious: No
  Sender: FDA-Public Use
  Company Number: US-JNJFOC-20160414405

PATIENT
  Sex: Female
  Weight: 77.11 kg

DRUGS (3)
  1. TOPAMAX [Suspect]
     Active Substance: TOPIRAMATE
     Indication: EPILEPSY
     Route: 048
     Dates: start: 2004, end: 2004
  2. CELEBREX [Concomitant]
     Active Substance: CELECOXIB
     Indication: ARTHRITIS
     Route: 065
  3. TOPAMAX [Suspect]
     Active Substance: TOPIRAMATE
     Indication: EPILEPSY
     Route: 048
     Dates: start: 2004, end: 2004

REACTIONS (7)
  - Thinking abnormal [Recovered/Resolved]
  - Drug ineffective [Unknown]
  - Dizziness [Recovered/Resolved]
  - Therapy cessation [Unknown]
  - Aphasia [Recovered/Resolved]
  - Dysarthria [Recovered/Resolved]
  - Confusional state [Recovered/Resolved]

NARRATIVE: CASE EVENT DATE: 2004
